FAERS Safety Report 22226649 (Version 1)
Quarter: 2023Q2

REPORT INFORMATION
  Report Type: Other
  Country: BE (occurrence: None)
  Receive Date: 20230419
  Receipt Date: 20230419
  Transmission Date: 20230721
  Serious: Yes (Other)
  Sender: FDA-Public Use
  Company Number: BE-AMGEN-BELSP2023055201

PATIENT
  Age: 72 Year
  Sex: Male

DRUGS (15)
  1. BEVACIZUMAB [Suspect]
     Active Substance: BEVACIZUMAB
     Indication: Colon cancer metastatic
     Route: 065
  2. PEGFILGRASTIM [Suspect]
     Active Substance: PEGFILGRASTIM
     Indication: Product used for unknown indication
     Dosage: UNK
     Route: 065
  3. PANITUMUMAB [Suspect]
     Active Substance: PANITUMUMAB
     Indication: Adenocarcinoma of colon
     Route: 065
  4. CAPECITABINE [Concomitant]
     Active Substance: CAPECITABINE
     Dosage: UNK
     Route: 048
     Dates: start: 202001
  5. METHYLPREDNISOLONE [Concomitant]
     Active Substance: METHYLPREDNISOLONE
  6. LEUCOVORIN [Concomitant]
     Active Substance: LEUCOVORIN
  7. FLUOROURACIL [Concomitant]
     Active Substance: FLUOROURACIL
     Dates: start: 201905
  8. LEUCOVORIN SODIUM [Concomitant]
     Active Substance: LEUCOVORIN SODIUM
     Dosage: 100 MG/ML
  9. FOLVITE [Concomitant]
     Active Substance: FOLIC ACID
  10. PALONOSETRON [Concomitant]
     Active Substance: PALONOSETRON
  11. DEXCHLORPHENIRAMINE MALEATE [Concomitant]
     Active Substance: DEXCHLORPHENIRAMINE MALEATE
  12. ACETAMINOPHEN [Concomitant]
     Active Substance: ACETAMINOPHEN
  13. DEXAMETHASONE [Concomitant]
     Active Substance: DEXAMETHASONE
  14. IRINOTECAN [Concomitant]
     Active Substance: IRINOTECAN
  15. HISTAMINE DIHYDROCHLORIDE [Concomitant]
     Active Substance: HISTAMINE DIHYDROCHLORIDE
     Dosage: 10 MILLIGRAM PER MILLILITRE

REACTIONS (3)
  - Colon cancer metastatic [Unknown]
  - Myalgia [Unknown]
  - Diarrhoea [Unknown]
